FAERS Safety Report 18986040 (Version 1)
Quarter: 2021Q1

REPORT INFORMATION
  Report Type: Spontaneous
  Country: US (occurrence: US)
  Receive Date: 20210309
  Receipt Date: 20210309
  Transmission Date: 20210420
  Serious: No
  Sender: FDA-Public Use
  Company Number: US-BAYER-2021-101547

PATIENT
  Age: 82 Year

DRUGS (2)
  1. MIRALAX [Suspect]
     Active Substance: POLYETHYLENE GLYCOL 3350
     Dosage: 1 DF
     Route: 065
  2. MIRALAX [Suspect]
     Active Substance: POLYETHYLENE GLYCOL 3350
     Dosage: 0.75 DF
     Route: 065

REACTIONS (3)
  - Diarrhoea [Unknown]
  - Drug ineffective [None]
  - Incorrect dose administered [Unknown]
